FAERS Safety Report 4654718-6 (Version None)
Quarter: 2005Q2

REPORT INFORMATION
  Report Type: 
  Country: None (occurrence: None)
  Receive Date: 20050506
  Receipt Date: 20050502
  Transmission Date: 20051028
  Serious: Yes (Hospitalization)
  Sender: FDA-Public Use
  Company Number: 200511508FR

PATIENT
  Age: 70 Year
  Sex: Female

DRUGS (3)
  1. KETEK [Suspect]
     Indication: BRONCHITIS
     Route: 048
     Dates: start: 20050126, end: 20050130
  2. TAHOR [Suspect]
     Route: 048
     Dates: start: 20030411, end: 20050127
  3. ACTONEL [Concomitant]
     Route: 048
     Dates: start: 20030115

REACTIONS (5)
  - BLOOD CREATINE PHOSPHOKINASE INCREASED [None]
  - BLOOD LACTATE DEHYDROGENASE INCREASED [None]
  - DERMATOMYOSITIS [None]
  - MYALGIA [None]
  - RASH [None]
